FAERS Safety Report 5275283-9 (Version None)
Quarter: 2007Q1

REPORT INFORMATION
  Report Type: 
  Country: None (occurrence: None)
  Receive Date: 20061219
  Receipt Date: 20060922
  Transmission Date: 20070707
  Serious: Yes (Hospitalization, Other)
  Sender: FDA-Public Use
  Company Number: US-JNJFOC-20060905587

PATIENT
  Sex: Female

DRUGS (1)
  1. ORTHO EVRA [Suspect]
     Indication: CONTRACEPTION
     Dosage: 1 DOSE(S), 3 IN 4 WEEK, TRANSDERMAL
     Route: 062
     Dates: start: 20030101, end: 20040901

REACTIONS (1)
  - MYOCARDIAL INFARCTION [None]
